FAERS Safety Report 4974769-1 (Version None)
Quarter: 2006Q2

REPORT INFORMATION
  Report Type: 
  Country: None (occurrence: None)
  Receive Date: 20060417
  Receipt Date: 20051001
  Transmission Date: 20061013
  Serious: Yes (Hospitalization, Disabling)
  Sender: FDA-Public Use
  Company Number: PR-MERCK-0510USA01799

PATIENT
  Sex: Male
  Weight: 73 kg

DRUGS (1)
  1. VIOXX [Suspect]
     Indication: PAIN IN EXTREMITY
     Route: 048
     Dates: start: 20040128, end: 20040131

REACTIONS (4)
  - ANGIOPATHY [None]
  - ARRHYTHMIA [None]
  - MYOCARDIAL INFARCTION [None]
  - OVERDOSE [None]
